FAERS Safety Report 20721216 (Version 1)
Quarter: 2022Q2

REPORT INFORMATION
  Report Type: Spontaneous
  Country: US (occurrence: None)
  Receive Date: 20220416
  Receipt Date: 20220416
  Transmission Date: 20220721
  Serious: Yes (Other)
  Sender: FDA-Public Use
  Company Number: None

PATIENT
  Age: 70 Year
  Sex: Male
  Weight: 157.5 kg

DRUGS (9)
  1. PREGABALIN [Suspect]
     Active Substance: PREGABALIN
     Indication: Neuropathy peripheral
     Dosage: OTHER QUANTITY : 60 TABLET(S);?FREQUENCY : TWICE A DAY;?
     Route: 048
     Dates: start: 20220407, end: 20220409
  2. GUAIFENESIN [Concomitant]
     Active Substance: GUAIFENESIN
  3. BACLOFEN [Concomitant]
     Active Substance: BACLOFEN
  4. CARVEDILOL [Concomitant]
     Active Substance: CARVEDILOL
  5. OXYBUTYNIN [Concomitant]
     Active Substance: OXYBUTYNIN
  6. Terrazosin [Concomitant]
  7. MELOXICAM [Concomitant]
     Active Substance: MELOXICAM
  8. QUETIAPINE [Concomitant]
     Active Substance: QUETIAPINE
  9. TYLENOL [Concomitant]
     Active Substance: ACETAMINOPHEN

REACTIONS (9)
  - Feeling abnormal [None]
  - Loss of consciousness [None]
  - Dyspnoea [None]
  - Near death experience [None]
  - Dysarthria [None]
  - Nasal congestion [None]
  - Respiratory arrest [None]
  - Sleep apnoea syndrome [None]
  - Somnolence [None]

NARRATIVE: CASE EVENT DATE: 20220409
